FAERS Safety Report 6503789-0 (Version None)
Quarter: 2009Q4

REPORT INFORMATION
  Report Type: 
  Country: None (occurrence: None)
  Receive Date: 20091217
  Receipt Date: 20091211
  Transmission Date: 20100525
  Serious: Yes (Other)
  Sender: FDA-Public Use
  Company Number: A0834150A

PATIENT
  Sex: Male
  Weight: 72.7 kg

DRUGS (5)
  1. ADVAIR DISKUS 100/50 [Suspect]
     Indication: ASTHMA
     Route: 055
     Dates: start: 20010101
  2. EXERCISE [Concomitant]
  3. VERAMYST [Concomitant]
     Route: 045
  4. CALCIUM SUPPLEMENT [Concomitant]
  5. FLOMAX [Concomitant]

REACTIONS (7)
  - ASTHENIA [None]
  - CATARACT [None]
  - DYSPHONIA [None]
  - MUSCLE ATROPHY [None]
  - MUSCULAR WEAKNESS [None]
  - TREMOR [None]
  - WEIGHT DECREASED [None]
